FAERS Safety Report 24323707 (Version 1)
Quarter: 2024Q3

REPORT INFORMATION
  Report Type: Spontaneous
  Country: GB (occurrence: None)
  Receive Date: 20240916
  Receipt Date: 20240916
  Transmission Date: 20241017
  Serious: Yes (Disabling)
  Sender: INFORLIFE
  Company Number: GB-MLMSERVICE-20240903-PI179979-00029-1

PATIENT
  Age: 7 Decade
  Sex: Female

DRUGS (2)
  1. ACETAMINOPHEN [Suspect]
     Active Substance: ACETAMINOPHEN
     Indication: Headache
  2. ACETAMINOPHEN\GUAIFENESIN\PHENYLEPHRINE HYDROCHLORIDE [Suspect]
     Active Substance: ACETAMINOPHEN\GUAIFENESIN\PHENYLEPHRINE HYDROCHLORIDE
     Indication: Rhinitis
     Dosage: SINGLE DOSE OF THE MEDICATION, AROUND 9?10 O?CLOCK THAT EVENING ; IN TOTAL

REACTIONS (1)
  - Angle closure glaucoma [Recovered/Resolved]
